FAERS Safety Report 8906410 (Version 1)
Quarter: 2012Q4

REPORT INFORMATION
  Report Type: Spontaneous
  Country: US (occurrence: None)
  Receive Date: 20121108
  Receipt Date: 20121108
  Transmission Date: 20130627
  Serious: Yes (Hospitalization)
  Sender: FDA-Public Use
  Company Number: 2012AP003681

PATIENT
  Age: 89 Year
  Sex: Male

DRUGS (5)
  1. AMOXICILLIN AND CLAVULANATE POTASSIUM TABLETS USP [Suspect]
     Indication: ANTIBIOTIC THERAPY
  2. PIPERACILLIN / TAZOBACTAM [Suspect]
     Indication: ANTIBIOTIC THERAPY
  3. NITROFURANTOIN [Suspect]
     Indication: ANTIBIOTIC THERAPY
  4. PIPERACILLIN W/TAZOBACTAM [Suspect]
     Indication: ANTIBIOTIC THERAPY
  5. NITROFURANTOIN [Suspect]
     Indication: ANTIBIOTIC THERAPY

REACTIONS (5)
  - Malaise [None]
  - Decreased appetite [None]
  - Staphylococcal infection [None]
  - Diarrhoea [None]
  - Weight decreased [None]
